FAERS Safety Report 5331275-2 (Version None)
Quarter: 2007Q2

REPORT INFORMATION
  Report Type: 
  Country: None (occurrence: None)
  Receive Date: 20070301
  Receipt Date: 20060801
  Transmission Date: 20071010
  Serious: Yes (Other)
  Sender: FDA-Public Use
  Company Number: 2953

PATIENT
  Age: 16 Year
  Sex: Male
  Weight: 102 kg

DRUGS (4)
  1. AMNESTEEM [Suspect]
     Indication: ACNE
     Dosage: 40 MG, QD, PO
     Route: 048
     Dates: start: 20051109, end: 20060205
  2. FEXOFENADINE [Concomitant]
  3. NAPROXEN [Concomitant]
  4. IBUPROFEN [Concomitant]

REACTIONS (4)
  - BLOOD TRIGLYCERIDES INCREASED [None]
  - NAUSEA [None]
  - TESTICULAR PAIN [None]
  - VOMITING [None]
